FAERS Safety Report 16773438 (Version 3)
Quarter: 2019Q3

REPORT INFORMATION
  Report Type: Report from Study
  Country: US (occurrence: US)
  Receive Date: 20190904
  Receipt Date: 20190924
  Transmission Date: 20191005
  Serious: Yes (Hospitalization)
  Sender: FDA-Public Use
  Company Number: US-ACTELION-A-NJ2019-194616

PATIENT
  Age: 69 Year
  Sex: Female
  Weight: 61.22 kg

DRUGS (2)
  1. VELETRI [Suspect]
     Active Substance: EPOPROSTENOL
     Indication: PULMONARY HYPERTENSION
     Dosage: 6 NG/KG, PER MIN
     Route: 042
  2. OPSUMIT [Suspect]
     Active Substance: MACITENTAN
     Indication: PULMONARY HYPERTENSION
     Dosage: 10 MG, QD
     Route: 048

REACTIONS (17)
  - Catheter site erythema [Unknown]
  - Headache [Not Recovered/Not Resolved]
  - Injection site irritation [Unknown]
  - Malaise [Unknown]
  - Catheter site warmth [Unknown]
  - Catheter site pruritus [Unknown]
  - Nasal congestion [Unknown]
  - Pyrexia [Unknown]
  - Dry eye [Unknown]
  - Vascular device infection [Unknown]
  - Catheter site pain [Unknown]
  - Nausea [Not Recovered/Not Resolved]
  - Dysphonia [Unknown]
  - Application site vesicles [Recovering/Resolving]
  - Catheter site swelling [Unknown]
  - Catheter site rash [Recovering/Resolving]
  - Oropharyngeal pain [Unknown]

NARRATIVE: CASE EVENT DATE: 20190819
